FAERS Safety Report 10665551 (Version 2)
Quarter: 2014Q4

REPORT INFORMATION
  Report Type: Spontaneous
  Country: FR (occurrence: FR)
  Receive Date: 20141219
  Receipt Date: 20141230
  Transmission Date: 20150529
  Serious: Yes (Life-Threatening)
  Sender: FDA-Public Use
  Company Number: FR-MYLANLABS-2014M1014785

PATIENT

DRUGS (6)
  1. EPINEPHRINE. [Suspect]
     Active Substance: EPINEPHRINE
     Indication: SINUS BRADYCARDIA
     Dosage: 1 MG
     Route: 042
  2. ATROPINE [Concomitant]
     Active Substance: ATROPINE
     Indication: SINUS BRADYCARDIA
     Dosage: 1MG
     Route: 042
  3. PROPOFOL. [Concomitant]
     Active Substance: PROPOFOL
     Indication: ANAESTHESIA
     Dosage: 3 MG/KG
     Route: 065
  4. CISATRACURIUM BESILATE [Concomitant]
     Active Substance: CISATRACURIUM BESYLATE
     Indication: ANAESTHESIA
     Dosage: 0.15 MG/KG
     Route: 065
  5. KETAMINE [Concomitant]
     Active Substance: KETAMINE
     Indication: ANAESTHESIA
     Dosage: 0.15 MG/KG
     Route: 065
  6. SUFENTANIL [Concomitant]
     Active Substance: SUFENTANIL
     Indication: ANAESTHESIA
     Dosage: 0.23 MICROG/KG
     Route: 065

REACTIONS (9)
  - Hepatocellular injury [Unknown]
  - Stress cardiomyopathy [Recovered/Resolved]
  - Ventricular fibrillation [Recovered/Resolved]
  - Metabolic acidosis [Unknown]
  - Cardiac arrest [Recovered/Resolved]
  - Acute kidney injury [Unknown]
  - Cardiogenic shock [Recovered/Resolved]
  - Drug administration error [Recovered/Resolved]
  - Hepatic failure [Unknown]
